FAERS Safety Report 9120080 (Version 2)
Quarter: 2013Q2

REPORT INFORMATION
  Report Type: Spontaneous
  Country: US (occurrence: US)
  Receive Date: 20130226
  Receipt Date: 20130429
  Transmission Date: 20140414
  Serious: Yes (Hospitalization)
  Sender: FDA-Public Use
  Company Number: US-ELI_LILLY_AND_COMPANY-US201302006367

PATIENT
  Age: 54 Year
  Sex: Male

DRUGS (13)
  1. FORTEO [Suspect]
     Indication: OSTEOPOROSIS
     Dosage: 20 UG, QD
     Route: 058
     Dates: start: 20120401
  2. ALBUTEROL [Concomitant]
  3. LIPITOR [Concomitant]
  4. CELEXA [Concomitant]
  5. BENADRYL [Concomitant]
  6. PEPCID [Concomitant]
     Dosage: UNK, BID
  7. FLONASE [Concomitant]
  8. LACTULOSE [Concomitant]
  9. LORATADINE [Concomitant]
  10. MULTIVITAMIN [Concomitant]
     Dosage: UNK, QD
  11. MIRALAX [Concomitant]
  12. PULMICORT [Concomitant]
     Dosage: UNK, BID
  13. RISPERDAL [Concomitant]

REACTIONS (4)
  - Deep vein thrombosis [Recovered/Resolved]
  - Atrial fibrillation [Recovered/Resolved]
  - Pneumonia [Recovered/Resolved]
  - International normalised ratio fluctuation [Unknown]
